FAERS Safety Report 24104087 (Version 1)
Quarter: 2024Q3

REPORT INFORMATION
  Report Type: Report from Study
  Country: PH (occurrence: PH)
  Receive Date: 20240717
  Receipt Date: 20240717
  Transmission Date: 20241016
  Serious: Yes (Other)
  Sender: NOVARTIS
  Company Number: PH-002147023-NVSC2024PH145238

PATIENT
  Age: 49 Year
  Sex: Male

DRUGS (2)
  1. NILOTINIB [Suspect]
     Active Substance: NILOTINIB
     Indication: Product used for unknown indication
     Dosage: 2 DOSAGE FORM, BID (2 CAPSULES 2X A DAY)
     Route: 048
  2. NILOTINIB [Suspect]
     Active Substance: NILOTINIB
     Dosage: 2 DOSAGE FORM, QD
     Route: 048

REACTIONS (2)
  - Deafness [Unknown]
  - Hypersensitivity [Unknown]
